FAERS Safety Report 14099470 (Version 2)
Quarter: 2017Q4

REPORT INFORMATION
  Report Type: Spontaneous
  Country: GB (occurrence: GB)
  Receive Date: 20171017
  Receipt Date: 20171102
  Transmission Date: 20180321
  Serious: Yes (Disabling, Congenital Anomaly, Other)
  Sender: FDA-Public Use
  Company Number: GB-ABBVIE-17P-167-2133077-00

PATIENT
  Sex: Male

DRUGS (1)
  1. VALPROATE SODIUM. [Suspect]
     Active Substance: VALPROATE SODIUM
     Indication: MATERNAL EXPOSURE TIMING UNSPECIFIED
     Route: 064

REACTIONS (9)
  - Disturbance in social behaviour [Unknown]
  - Back pain [Unknown]
  - Sleep disorder [Unknown]
  - Foetal exposure during pregnancy [Unknown]
  - Body height above normal [Unknown]
  - Pain in extremity [Unknown]
  - Fine motor skill dysfunction [Unknown]
  - Disturbance in attention [Unknown]
  - Gastrooesophageal reflux disease [Unknown]
